FAERS Safety Report 24338223 (Version 1)
Quarter: 2024Q3

REPORT INFORMATION
  Report Type: Spontaneous
  Country: US (occurrence: US)
  Receive Date: 20240919
  Receipt Date: 20240919
  Transmission Date: 20241017
  Serious: No
  Sender: SANOFI AVENTIS
  Company Number: US-SA-2024SA269267

PATIENT
  Sex: Female

DRUGS (8)
  1. DUPIXENT [Suspect]
     Active Substance: DUPILUMAB
     Indication: Dermatitis atopic
     Dosage: INJECT 300MG SUBCUTANEOUSLY EVERY 2 WEEKS
     Route: 058
     Dates: start: 20160828
  2. GABAPENTIN [Concomitant]
     Active Substance: GABAPENTIN
  3. LEVOTHYROXINE [Concomitant]
     Active Substance: LEVOTHYROXINE\LEVOTHYROXINE SODIUM
  4. MYRBETRIQ [Concomitant]
     Active Substance: MIRABEGRON
  5. OXYBUTYNIN [Concomitant]
     Active Substance: OXYBUTYNIN\OXYBUTYNIN CHLORIDE
  6. PRAMIPEXOLE [Concomitant]
     Active Substance: PRAMIPEXOLE\PRAMIPEXOLE DIHYDROCHLORIDE
  7. CHOLECALCIFEROL [Concomitant]
     Active Substance: CHOLECALCIFEROL
  8. VITAMIN E [Concomitant]
     Active Substance: .ALPHA.-TOCOPHEROL

REACTIONS (1)
  - Back pain [Not Recovered/Not Resolved]
